FAERS Safety Report 7912286-7 (Version None)
Quarter: 2011Q4

REPORT INFORMATION
  Report Type: 
  Country: None (occurrence: None)
  Receive Date: 20111114
  Receipt Date: 20111019
  Transmission Date: 20120403
  Serious: Yes (Other)
  Sender: FDA-Public Use
  Company Number: US-BAYER-200840657NA

PATIENT
  Age: 42 Year
  Sex: Male

DRUGS (1)
  1. CIPROFLOXACIN [Suspect]
     Route: 065
     Dates: start: 20030101

REACTIONS (11)
  - PAIN [None]
  - CONVULSION [None]
  - NERVE INJURY [None]
  - ANXIETY [None]
  - HERPES VIRUS INFECTION [None]
  - TENDON DISORDER [None]
  - AGRAPHIA [None]
  - URTICARIA [None]
  - MEMORY IMPAIRMENT [None]
  - APHASIA [None]
  - UNEVALUABLE EVENT [None]
